FAERS Safety Report 23213854 (Version 1)
Quarter: 2023Q4

REPORT INFORMATION
  Report Type: Report from Study
  Country: CN (occurrence: CN)
  Receive Date: 20231121
  Receipt Date: 20231121
  Transmission Date: 20240109
  Serious: Yes (Life-Threatening, Other)
  Sender: FDA-Public Use
  Company Number: CN-TAKEDA-2022TUS020161

PATIENT
  Age: 61 Year
  Sex: Male
  Weight: 60 kg

DRUGS (33)
  1. BRENTUXIMAB VEDOTIN [Suspect]
     Active Substance: BRENTUXIMAB VEDOTIN
     Indication: Angioimmunoblastic T-cell lymphoma
     Dosage: 100 MILLIGRAM, Q3WEEKS
     Route: 041
     Dates: start: 20220128
  2. THROMBOPOIETIN [Suspect]
     Active Substance: THROMBOPOIETIN
     Indication: Anaemia
     Dosage: 3 MILLILITER, QD
     Route: 042
     Dates: start: 20220203, end: 20220210
  3. DEXAMETHASONE ACETATE [Suspect]
     Active Substance: DEXAMETHASONE ACETATE
     Indication: Lymphoma
     Dosage: 10 MILLIGRAM, QD
     Route: 042
     Dates: start: 20210126, end: 20220129
  4. DEXAMETHASONE ACETATE [Suspect]
     Active Substance: DEXAMETHASONE ACETATE
     Indication: Hypersensitivity
     Dosage: 15 MILLIGRAM, QD
     Route: 042
     Dates: start: 20210128, end: 20220201
  5. DEXAMETHASONE ACETATE [Suspect]
     Active Substance: DEXAMETHASONE ACETATE
     Dosage: 5 MILLIGRAM
     Route: 042
     Dates: start: 20220125, end: 20220125
  6. RABEPRAZOLE SODIUM [Concomitant]
     Active Substance: RABEPRAZOLE SODIUM
     Indication: Gastritis prophylaxis
     Dosage: 40 MILLIGRAM, QD
     Route: 042
     Dates: start: 20220125, end: 20220208
  7. LENTINAN [Concomitant]
     Active Substance: LENTINAN
     Indication: Immune enhancement therapy
     Dosage: 1 MILLIGRAM, QD
     Route: 042
     Dates: start: 20220125, end: 20220208
  8. POTASSIUM CHLORIDE [Concomitant]
     Active Substance: POTASSIUM CHLORIDE
     Indication: Mineral supplementation
     Dosage: 1 GRAM, TID
     Route: 042
     Dates: start: 20220125, end: 20220210
  9. SODIUM BICARBONATE [Concomitant]
     Active Substance: SODIUM BICARBONATE
     Indication: Fluid replacement
     Dosage: 125 MILLILITER, QD
     Route: 042
     Dates: start: 20220126, end: 20220205
  10. ENTECAVIR [Concomitant]
     Active Substance: ENTECAVIR
     Indication: Hepatitis B
     Dosage: 0.5 MILLIGRAM, QD
     Route: 048
     Dates: start: 20220127, end: 20220210
  11. ENTECAVIR [Concomitant]
     Active Substance: ENTECAVIR
     Dosage: 0.5 MILLIGRAM, QD
     Route: 048
     Dates: start: 20220128
  12. TORSEMIDE [Concomitant]
     Active Substance: TORSEMIDE
     Indication: Polyuria
     Dosage: 10 MILLIGRAM, QD
     Route: 042
     Dates: start: 20220127, end: 20220205
  13. COMPOUND AMINO ACID INJECTION (17AA) [Concomitant]
     Indication: Supplementation therapy
     Dosage: 200 MILLIGRAM, QD
     Route: 042
     Dates: start: 20220127, end: 20220208
  14. MANNATIDE [Concomitant]
     Indication: Immune enhancement therapy
     Dosage: 20 MILLIGRAM, QD
     Route: 042
     Dates: start: 20220127, end: 20220208
  15. FEBUXOSTAT [Concomitant]
     Active Substance: FEBUXOSTAT
     Indication: Gout
     Dosage: 40 MILLIGRAM, QD
     Route: 048
     Dates: start: 20220128, end: 20220210
  16. ESTAZOLAM [Concomitant]
     Active Substance: ESTAZOLAM
     Indication: Insomnia
     Dosage: 1 MILLIGRAM
     Route: 048
     Dates: start: 20220128, end: 20220210
  17. FOSAPREPITANT DIMEGLUMINE [Concomitant]
     Active Substance: FOSAPREPITANT DIMEGLUMINE
     Indication: Vomiting
     Dosage: 150 MILLIGRAM, QD
     Route: 042
     Dates: start: 20220128, end: 20220129
  18. AZASETRON HYDROCHLORIDE;SODIUM CHLORIDE [Concomitant]
     Indication: Vomiting
     Dosage: 10 MILLIGRAM, QD
     Route: 042
     Dates: start: 20220129, end: 20220130
  19. CALCIUM ASPARTATE [Concomitant]
     Active Substance: CALCIUM ASPARTATE
     Indication: Supplementation therapy
     Dosage: 20 MILLIGRAM, QD
     Route: 042
     Dates: start: 20220128, end: 20220129
  20. AMIFOSTINE [Concomitant]
     Active Substance: AMIFOSTINE
     Indication: Cytokine abnormal
     Dosage: 1 GRAM, QD
     Route: 042
     Dates: start: 20220128, end: 20220129
  21. CYCLOPHOSPHAMIDE [Concomitant]
     Active Substance: CYCLOPHOSPHAMIDE
     Indication: Lymphoma
     Dosage: 1 GRAM, QD
     Route: 042
     Dates: start: 20220128, end: 20220129
  22. MESNA [Concomitant]
     Active Substance: MESNA
     Indication: Targeted cancer therapy
     Dosage: 0.4 GRAM, TID
     Route: 042
     Dates: start: 20220128, end: 20220129
  23. DOXORUBICIN HYDROCHLORIDE [Concomitant]
     Active Substance: DOXORUBICIN HYDROCHLORIDE
     Indication: Lymphoma
     Dosage: 40 MILLIGRAM, QD
     Route: 042
     Dates: start: 20220129, end: 20220129
  24. DEXRAZOXANE [Concomitant]
     Active Substance: DEXRAZOXANE
     Indication: Cardiotoxicity
     Dosage: 500 MILLIGRAM, QD
     Route: 042
     Dates: start: 20220128, end: 20220129
  25. GLUTATHIONE [Concomitant]
     Active Substance: GLUTATHIONE
     Indication: Prophylaxis
     Dosage: 1.8 GRAM, QD
     Route: 042
     Dates: start: 20220128, end: 20220208
  26. THROMBOPOIETIN [Concomitant]
     Active Substance: THROMBOPOIETIN
     Indication: Platelet count decreased
     Dosage: 3 MILLILITER, QD
     Route: 058
     Dates: start: 20220203, end: 20220205
  27. ERYTHROPOIETIN [Concomitant]
     Active Substance: ERYTHROPOIETIN
     Indication: Anaemia
     Dosage: 3 MILLIGRAM, QD
     Route: 042
     Dates: start: 20220203, end: 20220210
  28. LIDOCAINE HYDROCHLORIDE [Concomitant]
     Active Substance: DEXTROSE MONOHYDRATE\EPINEPHRINE\EPINEPHRINE BITARTRATE\LIDOCAINE\LIDOCAINE HYDROCHLORIDE\LIDOCAINE
     Indication: Anaesthesia
     Dosage: 5 MILLILITER, QD
     Route: 061
     Dates: start: 20220125, end: 20220125
  29. HEPARIN SODIUM [Concomitant]
     Active Substance: HEPARIN SODIUM
     Indication: Prophylaxis
     Dosage: 2 MILLILITER, QD
     Route: 065
     Dates: start: 20220125, end: 20220125
  30. BISOPROLOL FUMARATE [Concomitant]
     Active Substance: BISOPROLOL FUMARATE
     Indication: Aortic dilatation
     Dosage: 5 MILLIGRAM, QD
     Route: 048
  31. BISOPROLOL FUMARATE [Concomitant]
     Active Substance: BISOPROLOL FUMARATE
     Indication: Mitral valve incompetence
  32. BISOPROLOL FUMARATE [Concomitant]
     Active Substance: BISOPROLOL FUMARATE
     Indication: Tricuspid valve incompetence
  33. PROMETHAZINE HYDROCHLORIDE [Concomitant]
     Active Substance: PROMETHAZINE HYDROCHLORIDE
     Indication: Hypersensitivity
     Dosage: 25 MILLIGRAM
     Route: 030
     Dates: start: 20220128, end: 20220128

REACTIONS (12)
  - Neutrophil count decreased [Not Recovered/Not Resolved]
  - Hypokalaemia [Recovering/Resolving]
  - White blood cell count increased [Recovered/Resolved]
  - White blood cell count decreased [Not Recovered/Not Resolved]
  - Platelet count decreased [Recovering/Resolving]
  - Gamma-glutamyltransferase increased [Recovered/Resolved]
  - Dermatitis [Recovering/Resolving]
  - Upper respiratory tract infection [Recovered/Resolved]
  - Blood lactate dehydrogenase increased [Not Recovered/Not Resolved]
  - Hypoalbuminaemia [Not Recovered/Not Resolved]
  - Anaemia [Recovering/Resolving]
  - Off label use [Recovered/Resolved]

NARRATIVE: CASE EVENT DATE: 20220128
